FAERS Safety Report 6865584-2 (Version None)
Quarter: 2010Q3

REPORT INFORMATION
  Report Type: 
  Country: None (occurrence: None)
  Receive Date: 20100721
  Receipt Date: 20080425
  Transmission Date: 20110219
  Serious: Yes (Other)
  Sender: FDA-Public Use
  Company Number: US-PFIZER INC-2008037246

PATIENT
  Sex: Female
  Weight: 65.8 kg

DRUGS (4)
  1. CHANTIX [Suspect]
     Indication: SMOKING CESSATION THERAPY
     Route: 048
     Dates: start: 20070101, end: 20080424
  2. ALL OTHER THERAPEUTIC PRODUCTS [Concomitant]
  3. POTASSIUM CHLORIDE [Concomitant]
  4. HERBAL NOS/MINERALS NOS [Concomitant]

REACTIONS (5)
  - DEPRESSION [None]
  - FEELING ABNORMAL [None]
  - HOSTILITY [None]
  - IMPATIENCE [None]
  - SUICIDAL IDEATION [None]
